FAERS Safety Report 5282969-9 (Version None)
Quarter: 2007Q1

REPORT INFORMATION
  Report Type: 
  Country: None (occurrence: None)
  Receive Date: 20061226
  Receipt Date: 20061004
  Transmission Date: 20070707
  Serious: Yes (Other)
  Sender: FDA-Public Use
  Company Number: PHEH2006US12601

PATIENT

DRUGS (1)
  1. ENABLEX [Suspect]
     Dosage: 7.5 MG

REACTIONS (1)
  - URINARY RETENTION [None]
